FAERS Safety Report 19145385 (Version 2)
Quarter: 2021Q2

REPORT INFORMATION
  Report Type: Spontaneous
  Country: IT (occurrence: IT)
  Receive Date: 20210416
  Receipt Date: 20210528
  Transmission Date: 20210717
  Serious: Yes (Other)
  Sender: FDA-Public Use
  Company Number: IT-CELLTRION INC.-2021IT004887

PATIENT

DRUGS (4)
  1. ANTI?T LYMPHOCYTE GLOBULINS [Suspect]
     Active Substance: THYMOCYTE IMMUNE GLOBULIN NOS
     Indication: ALLOGENIC STEM CELL TRANSPLANTATION
  2. TEPADINA [Suspect]
     Active Substance: THIOTEPA
     Indication: ALLOGENIC STEM CELL TRANSPLANTATION
  3. RITUXIMAB (UNKNOWN) [Suspect]
     Active Substance: RITUXIMAB
     Indication: ALLOGENIC STEM CELL TRANSPLANTATION
  4. MELPHALAN. [Suspect]
     Active Substance: MELPHALAN
     Indication: ALLOGENIC STEM CELL TRANSPLANTATION

REACTIONS (2)
  - Off label use [Unknown]
  - Acute graft versus host disease [Unknown]
